FAERS Safety Report 15013153 (Version 1)
Quarter: 2018Q2

REPORT INFORMATION
  Report Type: Spontaneous
  Country: FR (occurrence: FR)
  Receive Date: 20180614
  Receipt Date: 20180614
  Transmission Date: 20180711
  Serious: Yes (Hospitalization)
  Sender: FDA-Public Use
  Company Number: FR-ELI_LILLY_AND_COMPANY-FR201806001608

PATIENT
  Age: 68 Year
  Sex: Male

DRUGS (2)
  1. ALIMTA [Suspect]
     Active Substance: PEMETREXED DISODIUM
     Indication: LUNG ADENOCARCINOMA
     Dosage: 500 MG/M2, CYCLICAL
     Route: 042
     Dates: start: 20171129, end: 20180307
  2. CARBOPLATIN HOSPIRA [Suspect]
     Active Substance: CARBOPLATIN
     Indication: LUNG ADENOCARCINOMA
     Dosage: 1 DF, CYCLICAL
     Route: 042
     Dates: start: 20171129, end: 20180110

REACTIONS (2)
  - Acute coronary syndrome [Not Recovered/Not Resolved]
  - Cardiac failure [Not Recovered/Not Resolved]

NARRATIVE: CASE EVENT DATE: 20180411
